FAERS Safety Report 8812085 (Version 3)
Quarter: 2015Q3

REPORT INFORMATION
  Report Type: Report from Study
  Country: GB (occurrence: GB)
  Receive Date: 20120927
  Receipt Date: 20150717
  Transmission Date: 20151125
  Serious: Yes (Other)
  Sender: FDA-Public Use
  Company Number: GB-ROCHE-1134653

PATIENT
  Age: 63 Year
  Sex: Male
  Weight: 84 kg

DRUGS (7)
  1. NOVORAPID [Concomitant]
     Active Substance: INSULIN ASPART
  2. METFORMIN [Concomitant]
     Active Substance: METFORMIN HYDROCHLORIDE
  3. RANIBIZUMAB [Suspect]
     Active Substance: RANIBIZUMAB
     Dosage: PRN. MOST RECENT DOSE OF STUDY MEDICATION ON 28 FEB 2012
     Route: 050
     Dates: start: 20120228, end: 20120228
  4. SIMVASTATIN. [Concomitant]
     Active Substance: SIMVASTATIN
  5. ASPIRIN. [Concomitant]
     Active Substance: ASPIRIN
  6. RANIBIZUMAB [Suspect]
     Active Substance: RANIBIZUMAB
     Indication: DIABETIC RETINAL OEDEMA
     Dosage: PRN
     Route: 050
     Dates: start: 20111018, end: 20111018
  7. RAMIPRIL. [Concomitant]
     Active Substance: RAMIPRIL

REACTIONS (2)
  - Retinopathy proliferative [Not Recovered/Not Resolved]
  - Vitreous haemorrhage [Recovering/Resolving]

NARRATIVE: CASE EVENT DATE: 20120910
